FAERS Safety Report 20475646 (Version 1)
Quarter: 2022Q1

REPORT INFORMATION
  Report Type: Other
  Country: GB (occurrence: GB)
  Receive Date: 20220215
  Receipt Date: 20220215
  Transmission Date: 20220423
  Serious: No
  Sender: FDA-Public Use
  Company Number: GB-PFIZER INC-202101603878

PATIENT
  Age: 21 Year
  Sex: Female

DRUGS (1)
  1. SERTRALINE HYDROCHLORIDE [Suspect]
     Active Substance: SERTRALINE HYDROCHLORIDE
     Indication: Product used for unknown indication
     Dosage: 100 MG, DAILY (FILM-COATED TABLET)
     Route: 048

REACTIONS (3)
  - Oesophageal irritation [Unknown]
  - Sensation of foreign body [Unknown]
  - Wrong technique in product usage process [Unknown]
